FAERS Safety Report 20088593 (Version 2)
Quarter: 2021Q4

REPORT INFORMATION
  Report Type: Report from Study
  Country: US (occurrence: US)
  Receive Date: 20211119
  Receipt Date: 20211124
  Transmission Date: 20220303
  Serious: Yes (Other)
  Sender: FDA-Public Use
  Company Number: US-BEH-2021127666

PATIENT
  Age: 59 Year
  Sex: Male

DRUGS (1)
  1. ZEMAIRA [Suspect]
     Active Substance: .ALPHA.1-PROTEINASE INHIBITOR HUMAN
     Indication: Alpha-1 antitrypsin deficiency
     Dosage: UNK
     Route: 042
     Dates: start: 201808

REACTIONS (4)
  - Abdominal discomfort [Unknown]
  - Oedema peripheral [Unknown]
  - Eating disorder symptom [Recovered/Resolved]
  - Gastrointestinal pain [Unknown]
